FAERS Safety Report 9632679 (Version 3)
Quarter: 2013Q4

REPORT INFORMATION
  Report Type: Report from Study
  Country: US (occurrence: US)
  Receive Date: 20131018
  Receipt Date: 20131218
  Transmission Date: 20140711
  Serious: Yes (Other)
  Sender: FDA-Public Use
  Company Number: US-ABBVIE-13P-163-1156934-00

PATIENT
  Sex: Male
  Weight: 64.47 kg

DRUGS (1)
  1. HUMIRA [Suspect]
     Indication: CROHN^S DISEASE
     Route: 058
     Dates: start: 201309

REACTIONS (3)
  - Cellulitis [Recovering/Resolving]
  - Abscess [Recovering/Resolving]
  - Infection [Recovering/Resolving]
